FAERS Safety Report 25851551 (Version 1)
Quarter: 2025Q3

REPORT INFORMATION
  Report Type: Spontaneous
  Country: US (occurrence: US)
  Receive Date: 20250926
  Receipt Date: 20250926
  Transmission Date: 20251020
  Serious: Yes (Other)
  Sender: MERCK SHARP & DOHME LLC
  Company Number: US-009507513-2332697

PATIENT
  Sex: Female

DRUGS (7)
  1. SOTATERCEPT [Suspect]
     Active Substance: SOTATERCEPT
     Indication: Pulmonary hypertension
     Route: 065
  2. SOTATERCEPT [Suspect]
     Active Substance: SOTATERCEPT
     Route: 065
  3. SOTATERCEPT [Suspect]
     Active Substance: SOTATERCEPT
  4. SOTATERCEPT [Suspect]
     Active Substance: SOTATERCEPT
  5. Ambrisenta [Concomitant]
     Dosage: 10 MG DAILY
  6. SILDENAFIL [Concomitant]
     Active Substance: SILDENAFIL
  7. REMODULIN [Concomitant]
     Active Substance: TREPROSTINIL
     Route: 058

REACTIONS (1)
  - Gastrointestinal haemorrhage [Unknown]
